FAERS Safety Report 8420517-2 (Version None)
Quarter: 2012Q2

REPORT INFORMATION
  Report Type: 
  Country: None (occurrence: None)
  Receive Date: 20120608
  Receipt Date: 20120604
  Transmission Date: 20120825
  Serious: Yes (Other)
  Sender: FDA-Public Use
  Company Number: US-BIOGENIDEC-2012BI017261

PATIENT
  Age: 54 Year
  Sex: Female

DRUGS (7)
  1. PHENAZOPYRIDINE HCL TAB [Concomitant]
  2. XANAX [Concomitant]
  3. TYSABRI [Suspect]
     Indication: MULTIPLE SCLEROSIS
     Route: 042
     Dates: start: 20110425
  4. LISINOPRIL AND HYDROCHLOROTHIAZIDE [Concomitant]
  5. PRAVASTATIN [Concomitant]
  6. BACLOFEN [Concomitant]
  7. WELLBUTRIN [Concomitant]

REACTIONS (1)
  - MALIGNANT MELANOMA [None]
